FAERS Safety Report 4525044-0 (Version None)
Quarter: 2004Q4

REPORT INFORMATION
  Report Type: 
  Country: None (occurrence: None)
  Receive Date: 20041117
  Receipt Date: 20031021
  Transmission Date: 20050328
  Serious: Yes (Other)
  Sender: FDA-Public Use
  Company Number: C2003-2847.01

PATIENT
  Age: 59 Year
  Sex: Male
  Weight: 74.8435 kg

DRUGS (6)
  1. CLOZAPINE [Suspect]
     Indication: SCHIZOPHRENIA
     Dosage: 150MG QD, ORAL
     Route: 048
     Dates: start: 20030926, end: 20031011
  2. ASPIRIN [Concomitant]
  3. VITAMIN B-12 [Concomitant]
  4. UNKNOWN STOOL SOFTENERS [Concomitant]
  5. MAGNESIUM [Concomitant]
  6. ALUMINUM [Concomitant]

REACTIONS (1)
  - HAEMATOCRIT DECREASED [None]
